FAERS Safety Report 6339968-5 (Version None)
Quarter: 2009Q3

REPORT INFORMATION
  Report Type: 
  Country: None (occurrence: None)
  Receive Date: 20090903
  Receipt Date: 20090825
  Transmission Date: 20100115
  Serious: Yes (Other)
  Sender: FDA-Public Use
  Company Number: US-ASTRAZENECA-2009SE09728

PATIENT
  Age: 4 Year
  Sex: Male
  Weight: 16.8 kg

DRUGS (6)
  1. PULMICORT RESPULES [Suspect]
     Indication: ASTHMA
     Route: 055
     Dates: start: 20080101, end: 20080801
  2. PULMICORT RESPULES [Suspect]
     Route: 055
     Dates: start: 20080801, end: 20090101
  3. PULMICORT RESPULES [Suspect]
     Route: 055
     Dates: start: 20090501
  4. SINGULAIR [Concomitant]
  5. ALBUTEROL [Concomitant]
     Dosage: PER PRESCRIPTION
     Dates: end: 20090101
  6. MULTI-VITAMIN [Concomitant]

REACTIONS (5)
  - ASTHMA [None]
  - COUGH [None]
  - PNEUMONIA [None]
  - PYREXIA [None]
  - RHINORRHOEA [None]
